FAERS Safety Report 6459000-2 (Version None)
Quarter: 2009Q4

REPORT INFORMATION
  Report Type: 
  Country: None (occurrence: None)
  Receive Date: 20091127
  Receipt Date: 20091026
  Transmission Date: 20100525
  Serious: No
  Sender: FDA-Public Use
  Company Number: US-BAYER-200937532NA

PATIENT
  Age: 41 Year
  Sex: Female

DRUGS (1)
  1. MIRENA [Suspect]
     Indication: MENSTRUAL DISORDER
     Dosage: CONTINUOUS
     Route: 015
     Dates: start: 20090311

REACTIONS (2)
  - MENSTRUATION IRREGULAR [None]
  - WEIGHT INCREASED [None]
